FAERS Safety Report 11357265 (Version 1)
Quarter: 2015Q3

REPORT INFORMATION
  Report Type: Spontaneous
  Country: US (occurrence: US)
  Receive Date: 20150803
  Receipt Date: 20150803
  Transmission Date: 20151125
  Serious: No
  Sender: FDA-Public Use
  Company Number: US-ELI_LILLY_AND_COMPANY-US201311005654

PATIENT
  Age: 20 Year
  Sex: Female

DRUGS (2)
  1. ZYPREXA [Suspect]
     Active Substance: OLANZAPINE
     Dosage: 7.5 MG, EACH EVENING
     Route: 065
     Dates: start: 2007, end: 20131108
  2. ZYPREXA [Suspect]
     Active Substance: OLANZAPINE
     Indication: AFFECTIVE DISORDER
     Dosage: 5 MG, EACH MORNING
     Route: 065
     Dates: start: 2007, end: 20131108

REACTIONS (4)
  - Pruritus generalised [Unknown]
  - Off label use [Unknown]
  - Abdominal discomfort [Unknown]
  - Dyskinesia [Not Recovered/Not Resolved]

NARRATIVE: CASE EVENT DATE: 20131113
